FAERS Safety Report 18167897 (Version 1)
Quarter: 2020Q3

REPORT INFORMATION
  Report Type: Spontaneous
  Country: US (occurrence: US)
  Receive Date: 20200819
  Receipt Date: 20200819
  Transmission Date: 20201103
  Serious: Yes (Other)
  Sender: FDA-Public Use
  Company Number: US-HETERO-HET2020US00918

PATIENT
  Age: 41 Year
  Sex: Female

DRUGS (4)
  1. FINGOLIMOD. [Suspect]
     Active Substance: FINGOLIMOD
     Indication: IMMUNOMODULATORY THERAPY
     Dosage: 0.5 MG, QD
     Route: 065
  2. METHOTREXATE. [Suspect]
     Active Substance: METHOTREXATE
     Indication: IMMUNOMODULATORY THERAPY
     Dosage: 12.5 MG WEEKLY
     Route: 065
  3. ABATACEPT [Suspect]
     Active Substance: ABATACEPT
     Indication: IMMUNOMODULATORY THERAPY
     Dosage: 750 MG MONTHLY
     Route: 065
  4. APREMILAST [Concomitant]
     Active Substance: APREMILAST
     Indication: IMMUNOMODULATORY THERAPY
     Dosage: 30 MG, BID
     Route: 065

REACTIONS (1)
  - Molluscum contagiosum [Recovering/Resolving]
